FAERS Safety Report 5714554-6 (Version None)
Quarter: 2008Q2

REPORT INFORMATION
  Report Type: 
  Country: None (occurrence: None)
  Receive Date: 20080423
  Receipt Date: 20080416
  Transmission Date: 20081010
  Serious: Yes (Other)
  Sender: FDA-Public Use
  Company Number: B0516287A

PATIENT
  Sex: Female

DRUGS (1)
  1. NIQUITIN CQ 21MG [Suspect]
     Indication: SMOKING CESSATION THERAPY
     Route: 062

REACTIONS (5)
  - CHEST PAIN [None]
  - MYOCARDIAL INFARCTION [None]
  - PAIN IN EXTREMITY [None]
  - PANIC REACTION [None]
  - TREATMENT NONCOMPLIANCE [None]
